FAERS Safety Report 4791887-1 (Version None)
Quarter: 2005Q4

REPORT INFORMATION
  Report Type: 
  Country: None (occurrence: None)
  Receive Date: 20051005
  Receipt Date: 20050803
  Transmission Date: 20060501
  Serious: Yes (Hospitalization)
  Sender: FDA-Public Use
  Company Number: 2005RR-00814

PATIENT
  Age: 5 Year
  Sex: Female
  Weight: 18 kg

DRUGS (2)
  1. CEFTRIAXONE(CEFTRIAXONE) UNKNOWN [Suspect]
     Dosage: 900 MG, BID, INTRAVENOUS
     Route: 042
     Dates: start: 20050718, end: 20050722
  2. RANITIDINE [Suspect]
     Dosage: PARENTERAL
     Route: 051

REACTIONS (2)
  - CHILLS [None]
  - PYREXIA [None]
